FAERS Safety Report 4350028-5 (Version None)
Quarter: 2004Q2

REPORT INFORMATION
  Report Type: 
  Country: None (occurrence: None)
  Receive Date: 20040429
  Receipt Date: 20040422
  Transmission Date: 20050107
  Serious: Yes (Other)
  Sender: FDA-Public Use
  Company Number: 200413132US

PATIENT
  Sex: Female

DRUGS (2)
  1. CARAC [Suspect]
     Indication: PRECANCEROUS SKIN LESION
     Dosage: DOSE: UNK
  2. ADALAT [Concomitant]
     Indication: BLOOD PRESSURE
     Dosage: DOSE: UNK

REACTIONS (5)
  - ARTHRALGIA [None]
  - BACK PAIN [None]
  - CHONDROPATHY [None]
  - INFLAMMATION [None]
  - NON-CARDIAC CHEST PAIN [None]
